FAERS Safety Report 15525441 (Version 1)
Quarter: 2018Q4

REPORT INFORMATION
  Report Type: Spontaneous
  Country: US (occurrence: US)
  Receive Date: 20181018
  Receipt Date: 20181018
  Transmission Date: 20190205
  Serious: Yes (Hospitalization)
  Sender: FDA-Public Use
  Company Number: US-TEVA-2018-US-963663

PATIENT
  Age: 45 Year
  Sex: Male

DRUGS (7)
  1. LEVOCARNITINE. [Concomitant]
     Active Substance: LEVOCARNITINE
     Indication: OVERDOSE
     Dosage: SINGLE DOSE
     Route: 042
  2. NALOXONE [Concomitant]
     Active Substance: NALOXONE
     Indication: OVERDOSE
     Route: 030
  3. ACTIVATED CHARCOAL. [Concomitant]
     Active Substance: ACTIVATED CHARCOAL
     Indication: OVERDOSE
     Route: 050
  4. CEFEPIME [Concomitant]
     Active Substance: CEFEPIME HYDROCHLORIDE
     Indication: ANTIBIOTIC THERAPY
     Route: 065
  5. DIVALPROEX SODIUM. [Suspect]
     Active Substance: DIVALPROEX SODIUM
     Dosage: 10 G (ESTIMATED)
     Route: 048
  6. MEROPENEM. [Interacting]
     Active Substance: MEROPENEM
     Indication: PNEUMONIA ASPIRATION
     Route: 042
  7. METRONIDAZOLE. [Concomitant]
     Active Substance: METRONIDAZOLE
     Indication: ANTIBIOTIC THERAPY
     Route: 065

REACTIONS (7)
  - Nervous system disorder [Recovered/Resolved]
  - Drug interaction [Recovered/Resolved]
  - Toxicity to various agents [Recovered/Resolved]
  - Unresponsive to stimuli [Recovered/Resolved]
  - Overdose [Recovered/Resolved]
  - Off label use [Unknown]
  - Hyperammonaemia [Recovering/Resolving]
